FAERS Safety Report 7621059-4 (Version None)
Quarter: 2011Q3

REPORT INFORMATION
  Report Type: 
  Country: None (occurrence: None)
  Receive Date: 20110719
  Receipt Date: 20100622
  Transmission Date: 20111222
  Serious: No
  Sender: FDA-Public Use
  Company Number: US-KINGPHARMUSA00001-K201000785

PATIENT
  Sex: Male
  Weight: 87.075 kg

DRUGS (2)
  1. LEVOXYL [Suspect]
     Dosage: 150 MCG, QD
     Route: 048
     Dates: start: 19960101
  2. GARLIC [Concomitant]
     Indication: SUPPLEMENTATION THERAPY

REACTIONS (3)
  - CARDIAC FLUTTER [None]
  - CHEST PAIN [None]
  - PALPITATIONS [None]
